FAERS Safety Report 5632531-0 (Version None)
Quarter: 2008Q1

REPORT INFORMATION
  Report Type: 
  Country: None (occurrence: None)
  Receive Date: 20080219
  Receipt Date: 20080204
  Transmission Date: 20080703
  Serious: Yes (Hospitalization)
  Sender: FDA-Public Use
  Company Number: 2008SP000248

PATIENT
  Age: 82 Year
  Sex: Female

DRUGS (11)
  1. XOPENEX [Suspect]
     Indication: ASTHMA
     Dosage: 1.25 MG/3ML; BID; INHALATION; 1.25 MG/3ML; BID; INHALATION
     Route: 055
     Dates: start: 20070101, end: 20070801
  2. XOPENEX [Suspect]
     Indication: CHRONIC OBSTRUCTIVE PULMONARY DISEASE
     Dosage: 1.25 MG/3ML; BID; INHALATION; 1.25 MG/3ML; BID; INHALATION
     Route: 055
     Dates: start: 20070101, end: 20070801
  3. XOPENEX [Suspect]
     Indication: ASTHMA
     Dosage: 1.25 MG/3ML; BID; INHALATION; 1.25 MG/3ML; BID; INHALATION
     Route: 055
     Dates: start: 20070801, end: 20080118
  4. XOPENEX [Suspect]
     Indication: CHRONIC OBSTRUCTIVE PULMONARY DISEASE
     Dosage: 1.25 MG/3ML; BID; INHALATION; 1.25 MG/3ML; BID; INHALATION
     Route: 055
     Dates: start: 20070801, end: 20080118
  5. ADVAIR DISKUS 100/50 [Suspect]
     Dates: start: 20070701, end: 20070801
  6. SYMBICORT [Suspect]
     Dates: start: 20071001, end: 20070101
  7. SYMBICORT [Suspect]
     Dates: start: 20080118, end: 20080101
  8. OXYGEN [Concomitant]
  9. DIOVAN /01319601/ [Concomitant]
  10. SYNTHROID [Concomitant]
  11. PREDNISONE TAB [Concomitant]

REACTIONS (5)
  - BLOOD IRON DECREASED [None]
  - BLOOD POTASSIUM DECREASED [None]
  - DRUG HYPERSENSITIVITY [None]
  - DYSPNOEA [None]
  - VERTIGO [None]
